FAERS Safety Report 15317575 (Version 1)
Quarter: 2018Q3

REPORT INFORMATION
  Report Type: Report from Study
  Country: US (occurrence: US)
  Receive Date: 20180824
  Receipt Date: 20180824
  Transmission Date: 20181010
  Serious: Yes (Other)
  Sender: FDA-Public Use
  Company Number: US-JAZZ-2016-US-022858

PATIENT
  Sex: Female

DRUGS (67)
  1. SILVER [Concomitant]
     Active Substance: SILVER
  2. ARGININE [Concomitant]
     Active Substance: ARGININE
  3. OXITRIPTAN [Concomitant]
     Active Substance: OXITRIPTAN
  4. TRIAMTERENE AND HYDROCHLOROTHIAZID [Concomitant]
     Active Substance: HYDROCHLOROTHIAZIDE\TRIAMTERENE
  5. DIAZEPAM. [Concomitant]
     Active Substance: DIAZEPAM
  6. RITALIN [Concomitant]
     Active Substance: METHYLPHENIDATE HYDROCHLORIDE
  7. MAGNESIUM [Concomitant]
     Active Substance: MAGNESIUM
  8. COLLAGEN [Concomitant]
     Active Substance: COLLAGEN
  9. LEMON BALM [Concomitant]
  10. COENZYME Q10 [Concomitant]
     Active Substance: UBIDECARENONE
  11. SAM?E [Concomitant]
     Active Substance: ADEMETIONINE
  12. VITAMIN B12 [Concomitant]
     Active Substance: CYANOCOBALAMIN
  13. CLONAZEPAM. [Concomitant]
     Active Substance: CLONAZEPAM
  14. ATORVASTATIN [Concomitant]
     Active Substance: ATORVASTATIN
  15. XYREM [Suspect]
     Active Substance: SODIUM OXYBATE
     Indication: FIBROMYALGIA
     Dosage: 1.5 G, BID
     Route: 048
     Dates: start: 200405, end: 2004
  16. GINKGO BILOBA [Concomitant]
     Active Substance: GINKGO
  17. AMITIZA [Concomitant]
     Active Substance: LUBIPROSTONE
  18. CLONIDINE HCL [Concomitant]
     Active Substance: CLONIDINE HYDROCHLORIDE
  19. ASCORBIC ACID. [Concomitant]
     Active Substance: ASCORBIC ACID
  20. ACETYLSALICYLIC ACID [Concomitant]
     Active Substance: ASPIRIN
  21. LACTULOSE. [Concomitant]
     Active Substance: LACTULOSE
  22. EVENING PRIMROSE [Concomitant]
  23. ARMOUR THYROID [Concomitant]
     Active Substance: THYROID, PORCINE
  24. BENAZEPRIL HCL [Concomitant]
     Active Substance: BENAZEPRIL HYDROCHLORIDE
  25. LAMOTRIGINE. [Concomitant]
     Active Substance: LAMOTRIGINE
  26. OXYCODONE HYDROCHLORIDE. [Concomitant]
     Active Substance: OXYCODONE HYDROCHLORIDE
  27. XYREM [Suspect]
     Active Substance: SODIUM OXYBATE
     Dosage: 3.5 G, BID (SECOND AND THIRD DOSE)
     Route: 048
     Dates: start: 201611
  28. GLUTAMIC ACID [Concomitant]
     Active Substance: GLUTAMIC ACID
  29. POTASSIUM GLUCONATE [Concomitant]
     Active Substance: POTASSIUM GLUCONATE
  30. CURCUMA LONGA [Concomitant]
     Active Substance: HERBALS\TURMERIC
  31. DHEA [Concomitant]
     Active Substance: PRASTERONE
  32. FOLIC ACID. [Concomitant]
     Active Substance: FOLIC ACID
  33. ALEVE [Concomitant]
     Active Substance: NAPROXEN SODIUM
  34. VITIS VINIFERA (GRAPE) FLOWER EXTRACT [Concomitant]
     Active Substance: VITIS VINIFERA FLOWERING TOP
  35. VITAMIN D3 [Concomitant]
     Active Substance: CHOLECALCIFEROL
  36. NUCYNTA [Concomitant]
     Active Substance: TAPENTADOL HYDROCHLORIDE
  37. XYREM [Suspect]
     Active Substance: SODIUM OXYBATE
     Indication: NARCOLEPSY
     Dosage: DOSE ADJUSTMENT
     Dates: start: 200406, end: 2016
  38. GENISTEIN [Concomitant]
     Active Substance: GENISTEIN
  39. BELSOMRA [Concomitant]
     Active Substance: SUVOREXANT
  40. MSM [Concomitant]
     Active Substance: DIMETHYL SULFONE
  41. OMEPRAZOLE. [Concomitant]
     Active Substance: OMEPRAZOLE
  42. TIZANIDINE HCL [Concomitant]
     Active Substance: TIZANIDINE HYDROCHLORIDE
  43. SEROQUEL [Suspect]
     Active Substance: QUETIAPINE FUMARATE
     Indication: PRODUCT USED FOR UNKNOWN INDICATION
  44. VALERIANA OFFICINALIS ROOT [Concomitant]
     Active Substance: VALERIAN
  45. MONOLAURIN [Concomitant]
  46. MOVANTIK [Concomitant]
     Active Substance: NALOXEGOL OXALATE
  47. CAMELLIA SINENSIS [Concomitant]
     Active Substance: GREEN TEA LEAF
  48. SILYBUM MARIANUM [Concomitant]
     Active Substance: DIETARY SUPPLEMENT\HERBALS\MILK THISTLE
  49. BIFIDOBACTERIUM LACTIS [Concomitant]
     Active Substance: BIFIDOBACTERIUM ANIMALIS LACTIS
  50. XYREM [Suspect]
     Active Substance: SODIUM OXYBATE
     Dosage: 4 G, QD (FIRST DOSE)
     Route: 048
     Dates: start: 201611
  51. BIOTIN [Concomitant]
     Active Substance: BIOTIN
  52. FLAXSEED [Concomitant]
     Active Substance: FLAX SEED
  53. SELENIUM [Concomitant]
     Active Substance: SELENIUM
  54. MALIC ACID [Concomitant]
     Active Substance: MALIC ACID
  55. MAGNESIUM CITRATE. [Concomitant]
     Active Substance: MAGNESIUM CITRATE
  56. SYNTHROID [Concomitant]
     Active Substance: LEVOTHYROXINE SODIUM
  57. HYDROCHLOROTHIAZIDE. [Concomitant]
     Active Substance: HYDROCHLOROTHIAZIDE
  58. OXYCONTIN [Concomitant]
     Active Substance: OXYCODONE HYDROCHLORIDE
  59. WITHANIA SOMNIFERA [Concomitant]
     Active Substance: HERBALS
  60. RED YEAST RICE [Concomitant]
     Active Substance: DIETARY SUPPLEMENT
  61. FOENICULUM VULGARE [Concomitant]
     Active Substance: FENNEL SEED
  62. MELATONIN [Concomitant]
     Active Substance: MELATONIN
  63. PABA [Concomitant]
     Active Substance: AMINOBENZOIC ACID
  64. SALMON OIL [Concomitant]
     Active Substance: FISH OIL
  65. STOOL SOFTENER (DOCUSATE) [Concomitant]
     Active Substance: DOCUSATE
  66. CYMBALTA [Concomitant]
     Active Substance: DULOXETINE HYDROCHLORIDE
  67. SORBITOL. [Concomitant]
     Active Substance: SORBITOL

REACTIONS (6)
  - Complex regional pain syndrome [Unknown]
  - Osteoarthritis [Unknown]
  - Weight increased [Recovering/Resolving]
  - Blood pressure abnormal [Recovering/Resolving]
  - Initial insomnia [Unknown]
  - Intentional product misuse [Unknown]
